FAERS Safety Report 16189223 (Version 1)
Quarter: 2019Q2

REPORT INFORMATION
  Report Type: Spontaneous
  Country: US (occurrence: US)
  Receive Date: 20190411
  Receipt Date: 20190411
  Transmission Date: 20190711
  Serious: Yes (Other)
  Sender: FDA-Public Use
  Company Number: None

PATIENT
  Age: 44 Year
  Sex: Female
  Weight: 160.65 kg

DRUGS (14)
  1. ATORVASTATIN 40 MG [Concomitant]
     Active Substance: ATORVASTATIN
     Dates: start: 20160502
  2. HUMALOG 100UNIT/ML [Concomitant]
     Dates: start: 20160502
  3. METFORMIN [Concomitant]
     Active Substance: METFORMIN HYDROCHLORIDE
     Dates: start: 20160502
  4. IBUPROFEN 800 MG [Concomitant]
     Active Substance: IBUPROFEN
     Dates: start: 20160421
  5. OXCARBAZEPINE 300 MG [Concomitant]
  6. HIBICLENS 4% LIQUID [Concomitant]
     Dates: start: 20170818, end: 20171229
  7. CLONIDINE HCL 0.1 MG [Concomitant]
     Active Substance: CLONIDINE HYDROCHLORIDE
     Dates: start: 20160421, end: 20180214
  8. VALTREX (VALACYCLOVIR) 1 GRAM [Concomitant]
     Dates: start: 20170719, end: 20171220
  9. BUPRENORPHINE-NALOXONE GENERIC TABLETS [Suspect]
     Active Substance: BUPRENORPHINE\NALOXONE
     Indication: DRUG DEPENDENCE
     Route: 060
     Dates: start: 20170504, end: 20180620
  10. OLANZAPINE 10 MG [Concomitant]
     Active Substance: OLANZAPINE
     Dates: start: 20170606, end: 20181026
  11. GABAPENTIN 400MG [Concomitant]
     Active Substance: GABAPENTIN
     Dates: start: 20170109, end: 20190116
  12. DAILY MULTI VITAMIN FOR WOMEN [Concomitant]
     Dates: start: 20171106
  13. HYDROXYZINE PAMOATE 25 MG [Concomitant]
     Dates: start: 20171215, end: 20171222
  14. LISINOPRIL 10 MG [Concomitant]
     Active Substance: LISINOPRIL
     Dates: start: 20160513

REACTIONS (2)
  - Vomiting [None]
  - Drug level decreased [None]
